FAERS Safety Report 6504667-3 (Version None)
Quarter: 2009Q4

REPORT INFORMATION
  Report Type: 
  Country: None (occurrence: None)
  Receive Date: 20091218
  Receipt Date: 20091208
  Transmission Date: 20100525
  Serious: Yes (Other)
  Sender: FDA-Public Use
  Company Number: US-BIOGENIDEC-2008BI023516

PATIENT
  Age: 1 Day
  Sex: Female

DRUGS (1)
  1. AVONEX [Suspect]
     Indication: DRUG EXPOSURE DURING PREGNANCY
     Route: 064
     Dates: start: 19990201, end: 20000101

REACTIONS (3)
  - CARDIAC MURMUR [None]
  - HEARING IMPAIRED [None]
  - VISUAL IMPAIRMENT [None]
